FAERS Safety Report 7989727-2 (Version None)
Quarter: 2011Q4

REPORT INFORMATION
  Report Type: 
  Country: None (occurrence: None)
  Receive Date: 20111219
  Receipt Date: 20111206
  Transmission Date: 20120403
  Serious: Yes (Other)
  Sender: FDA-Public Use
  Company Number: US-ELI_LILLY_AND_COMPANY-US201008000979

PATIENT
  Sex: Female
  Weight: 54.422 kg

DRUGS (10)
  1. FORTEO [Suspect]
     Dosage: 20 UG, QD
  2. ASPIRIN [Concomitant]
  3. FORTEO [Suspect]
     Indication: OSTEOPOROSIS
     Dosage: 20 UG, QD
     Route: 065
     Dates: start: 20100721
  4. FORTEO [Suspect]
     Dosage: 20 UG, QD
     Route: 065
  5. FORTEO [Suspect]
     Dosage: 20 UG, QD
  6. FORTEO [Suspect]
     Dosage: 20 UG, QD
  7. FORTEO [Suspect]
     Dosage: 20 UG, QD
     Route: 065
  8. FORTEO [Suspect]
     Dosage: 20 UG, QD
  9. TOPROL-XL [Concomitant]
     Dosage: 100 MG, QD
  10. LIPITOR [Concomitant]
     Indication: BLOOD CHOLESTEROL
     Dosage: 20 MG, QD

REACTIONS (23)
  - EPISTAXIS [None]
  - BACK PAIN [None]
  - WEIGHT DECREASED [None]
  - LIMB DISCOMFORT [None]
  - DIZZINESS [None]
  - PALPITATIONS [None]
  - PAIN IN EXTREMITY [None]
  - NERVOUSNESS [None]
  - FEELING ABNORMAL [None]
  - NASOPHARYNGITIS [None]
  - CONSTIPATION [None]
  - BLOOD DISORDER [None]
  - MALAISE [None]
  - MUSCLE SPASMS [None]
  - CYSTITIS [None]
  - BRONCHITIS [None]
  - APPETITE DISORDER [None]
  - PAIN [None]
  - INSOMNIA [None]
  - BLOOD URINE PRESENT [None]
  - MUSCULOSKELETAL DISCOMFORT [None]
  - ASTHENIA [None]
  - NAUSEA [None]
